FAERS Safety Report 7355924-2 (Version None)
Quarter: 2011Q1

REPORT INFORMATION
  Report Type: 
  Country: None (occurrence: None)
  Receive Date: 20110307
  Receipt Date: 20110223
  Transmission Date: 20110831
  Serious: Yes (Hospitalization)
  Sender: FDA-Public Use
  Company Number: KV200800377

PATIENT
  Age: 78 Year
  Sex: Male
  Weight: 74.8 kg

DRUGS (10)
  1. MORPHINE SULFATE [Suspect]
     Indication: PAIN
     Dosage: 30 MG, TID PRN, ORAL
     Route: 048
     Dates: start: 20060213, end: 20081226
  2. LOPRESSOR [Suspect]
  3. PERCOCET [Concomitant]
  4. XANAX [Concomitant]
  5. RANEXA [Concomitant]
  6. COUMADIN [Concomitant]
  7. AMITRIPTYLINE (AMITIRTYLINE) [Concomitant]
  8. MORPHINE SULFATE [Suspect]
     Indication: BACK PAIN
     Dosage: 30 MG, TID, ORAL
     Route: 048
     Dates: start: 20081201, end: 20090923
  9. ADVAIR DISKUS 100/50 [Concomitant]
  10. COREG [Concomitant]

REACTIONS (21)
  - BRADYARRHYTHMIA [None]
  - FATIGUE [None]
  - SEDATION [None]
  - PRESYNCOPE [None]
  - RETROPERITONEAL HAEMORRHAGE [None]
  - ANXIETY [None]
  - RENAL HAEMATOMA [None]
  - SOMNOLENCE [None]
  - DIZZINESS [None]
  - HYPOXIA [None]
  - LETHARGY [None]
  - INSOMNIA [None]
  - GENERAL PHYSICAL HEALTH DETERIORATION [None]
  - NEPHROLITHIASIS [None]
  - PULMONARY EMBOLISM [None]
  - ASTHENIA [None]
  - LISTLESS [None]
  - DYSPNOEA EXERTIONAL [None]
  - HYPOTENSION [None]
  - PRODUCT SUBSTITUTION ISSUE [None]
  - POST PROCEDURAL HAEMORRHAGE [None]
